FAERS Safety Report 8473129-9 (Version None)
Quarter: 2012Q2

REPORT INFORMATION
  Report Type: 
  Country: None (occurrence: None)
  Receive Date: 20120627
  Receipt Date: 20120627
  Transmission Date: 20120825
  Serious: Yes (Hospitalization)
  Sender: FDA-Public Use
  Company Number: BR-PFIZER INC-2012152079

PATIENT
  Age: 60 Year
  Sex: Female

DRUGS (9)
  1. BENICAR HCT [Suspect]
     Indication: HYPERTENSION
     Dosage: 40/25 MG, A TABLET IN THE MORNING
     Route: 048
  2. METFORMIN [Concomitant]
     Dosage: UNK
     Route: 065
  3. AMLODIPINE [Concomitant]
     Dosage: UNK
     Route: 065
  4. LEVOTHYROXINE SODIUM [Concomitant]
     Dosage: UNK
     Route: 065
  5. SPIRONOLACTONE [Suspect]
     Indication: HYPERTENSION
     Dosage: 25 MG
     Route: 048
     Dates: start: 20120604
  6. OMEPRAZOLE [Concomitant]
     Dosage: UNK
     Route: 065
  7. SERTRALINE [Concomitant]
     Dosage: UNK
     Route: 065
  8. ACETYLSALICYLIC ACID [Concomitant]
     Dosage: UNK
     Route: 065
  9. BENICAR [Suspect]
     Indication: HYPERTENSION
     Dosage: 40 MG, 1X/DAY, AT NIGHT
     Route: 048

REACTIONS (4)
  - OVERDOSE [None]
  - HYPERTENSION [None]
  - KNEE ARTHROPLASTY [None]
  - WEIGHT DECREASED [None]
